FAERS Safety Report 15435930 (Version 1)
Quarter: 2018Q3

REPORT INFORMATION
  Report Type: Spontaneous
  Country: US (occurrence: US)
  Receive Date: 20180924
  Receipt Date: 20180924
  Transmission Date: 20181010
  Serious: No
  Sender: FDA-Public Use
  Company Number: None

PATIENT
  Age: 61 Year
  Weight: 117.93 kg

DRUGS (2)
  1. VALSARTAN?HCTZ 320?25MG TAB [Suspect]
     Active Substance: HYDROCHLOROTHIAZIDE\VALSARTAN
     Route: 048
     Dates: start: 20140305, end: 20180705
  2. HYDROCHLOROTHIAZIDE. [Suspect]
     Active Substance: HYDROCHLOROTHIAZIDE
     Indication: HYPERTENSION
     Route: 048
     Dates: start: 20140305, end: 20180903

REACTIONS (5)
  - Weight increased [None]
  - Blood pressure increased [None]
  - Cough [None]
  - Fluid overload [None]
  - Blood glucose increased [None]

NARRATIVE: CASE EVENT DATE: 20140305
